FAERS Safety Report 7416090-8 (Version None)
Quarter: 2011Q2

REPORT INFORMATION
  Report Type: 
  Country: None (occurrence: None)
  Receive Date: 20110414
  Receipt Date: 20110406
  Transmission Date: 20111010
  Serious: Yes (Other)
  Sender: FDA-Public Use
  Company Number: US-ROCHE-770121

PATIENT
  Age: 40 Year
  Sex: Female

DRUGS (1)
  1. COPEGUS [Suspect]
     Route: 065

REACTIONS (1)
  - ABORTION SPONTANEOUS [None]
